FAERS Safety Report 9508254 (Version 1)
Quarter: 2013Q1

REPORT INFORMATION
  Report Type: Spontaneous
  Country: US (occurrence: None)
  Receive Date: 20130305
  Receipt Date: 20130305
  Transmission Date: 20140127
  Serious: Yes (Other)
  Sender: FDA-Public Use
  Company Number: 163-21880-12082647

PATIENT
  Age: 66 Year
  Sex: Male
  Weight: 94.71 kg

DRUGS (1)
  1. REVLIMID (LENALIDOMIDE) (25 MILLIGRAM, CAPSULES) [Suspect]
     Indication: PLASMA CELL MYELOMA
     Dosage: CAPSULE, 5 MG, 28 IN 28 D, PO
     Dates: start: 20120124

REACTIONS (2)
  - Bronchitis [None]
  - Neuropathy peripheral [None]
